FAERS Safety Report 4483409-X (Version None)
Quarter: 2004Q4

REPORT INFORMATION
  Report Type: 
  Country: None (occurrence: None)
  Receive Date: 20041020
  Receipt Date: 20040929
  Transmission Date: 20050328
  Serious: Yes (Other)
  Sender: FDA-Public Use
  Company Number: JP_041004694

PATIENT
  Age: 78 Year
  Sex: Female

DRUGS (4)
  1. ONCOVIN [Suspect]
     Indication: HODGKIN'S DISEASE STAGE III
  2. DOXORUBICIN HCL [Concomitant]
  3. BLEOMYCIN [Concomitant]
  4. DACARBAZINE [Concomitant]

REACTIONS (2)
  - DIALYSIS [None]
  - RENAL FAILURE ACUTE [None]
